FAERS Safety Report 20807047 (Version 5)
Quarter: 2022Q3

REPORT INFORMATION
  Report Type: Spontaneous
  Country: US (occurrence: US)
  Receive Date: 20220510
  Receipt Date: 20220831
  Transmission Date: 20221027
  Serious: Yes (Hospitalization, Other)
  Sender: FDA-Public Use
  Company Number: US-SA-SAC20220506001385

PATIENT
  Age: 37 Year
  Sex: Male

DRUGS (1)
  1. DUPIXENT [Suspect]
     Active Substance: DUPILUMAB
     Indication: Asthma
     Dosage: 300MG QOW
     Route: 058
     Dates: start: 202111

REACTIONS (5)
  - Nephrolithiasis [Unknown]
  - Abdominal pain upper [Unknown]
  - Injection site swelling [Unknown]
  - Injection site pain [Unknown]
  - Exposure to toxic agent [Unknown]
